FAERS Safety Report 4465091-0 (Version None)
Quarter: 2004Q3

REPORT INFORMATION
  Report Type: 
  Country: None (occurrence: None)
  Receive Date: 20040928
  Receipt Date: 20040928
  Transmission Date: 20050211
  Serious: Yes (Hospitalization)
  Sender: FDA-Public Use
  Company Number: None

PATIENT
  Sex: Male

DRUGS (5)
  1. LEUCOVORIN CALCIUM [Suspect]
     Indication: RECTAL CANCER
     Dosage: 40 MG   DAILY   INTRAVENOUS
     Route: 042
     Dates: start: 20040203, end: 20040205
  2. FLUOROURACIL [Suspect]
     Indication: RECTAL CANCER
     Dosage: 800 MG   DAILY   INTRAVENOUS
     Route: 042
     Dates: start: 20040203, end: 20040205
  3. ASPIRIN [Concomitant]
  4. METOPROLOL [Concomitant]
  5. SIMVASTATIN [Concomitant]

REACTIONS (2)
  - DEHYDRATION [None]
  - FEBRILE NEUTROPENIA [None]
